FAERS Safety Report 4820017-2 (Version None)
Quarter: 2005Q4

REPORT INFORMATION
  Report Type: 
  Country: None (occurrence: None)
  Receive Date: 20051031
  Receipt Date: 20050822
  Transmission Date: 20060501
  Serious: No
  Sender: FDA-Public Use
  Company Number: 2005PV001140

PATIENT
  Age: 53 Year
  Sex: Female
  Weight: 68.0396 kg

DRUGS (4)
  1. SYMLIN [Suspect]
     Indication: DIABETES MELLITUS
     Dosage: 15 MCG;TID;SC ; 60 MCG;TID;SC
     Route: 058
     Dates: start: 20050701, end: 20050801
  2. SYMLIN [Suspect]
     Indication: DIABETES MELLITUS
     Dosage: 15 MCG;TID;SC ; 60 MCG;TID;SC
     Route: 058
     Dates: start: 20050801
  3. GLUCOPHAGE [Concomitant]
  4. NOVOLOG [Concomitant]

REACTIONS (4)
  - BLOOD GLUCOSE DECREASED [None]
  - FATIGUE [None]
  - FEELING ABNORMAL [None]
  - MALAISE [None]
